FAERS Safety Report 8337664-6 (Version None)
Quarter: 2012Q2

REPORT INFORMATION
  Report Type: 
  Country: None (occurrence: None)
  Receive Date: 20120504
  Receipt Date: 20120504
  Transmission Date: 20120825
  Serious: Yes (Life-Threatening)
  Sender: FDA-Public Use
  Company Number: None

PATIENT
  Age: 73 Year
  Sex: Male
  Weight: 82 kg

DRUGS (2)
  1. PRADAXA [Suspect]
     Indication: ANTICOAGULANT THERAPY
     Dosage: |DOSAGETEXT: 150MG||FREQ: BID||ROUTE: ORAL|
     Route: 048
  2. PRADAXA [Suspect]
     Indication: ATRIAL FIBRILLATION
     Dosage: |DOSAGETEXT: 150MG||FREQ: BID||ROUTE: ORAL|
     Route: 048

REACTIONS (5)
  - NAUSEA [None]
  - HEADACHE [None]
  - MALAISE [None]
  - PNEUMONIA [None]
  - INTRAVENTRICULAR HAEMORRHAGE [None]
